FAERS Safety Report 9834935 (Version 1)
Quarter: 2014Q1

REPORT INFORMATION
  Report Type: Spontaneous
  Country: DK (occurrence: DK)
  Receive Date: 20140122
  Receipt Date: 20140122
  Transmission Date: 20141002
  Serious: Yes (Life-Threatening)
  Sender: FDA-Public Use
  Company Number: DK-GLAXOSMITHKLINE-B0962282A

PATIENT
  Age: 64 Year
  Sex: Male

DRUGS (12)
  1. VOTRIENT [Suspect]
     Indication: RENAL CANCER METASTATIC
     Dosage: 800MG PER DAY
     Route: 048
     Dates: start: 20131105, end: 20131118
  2. MAGNESIUM [Concomitant]
     Indication: CONSTIPATION
     Route: 048
  3. PANTOPRAZOLE [Concomitant]
     Indication: GASTROOESOPHAGEAL REFLUX DISEASE
  4. MOTILIUM [Concomitant]
     Indication: NAUSEA
  5. IMOLOPE [Concomitant]
     Indication: DIARRHOEA
     Route: 048
  6. NOVORAPID [Concomitant]
     Indication: DIABETES MELLITUS
  7. LEVEMIR [Concomitant]
     Indication: DIABETES MELLITUS
  8. PREDNISOLONE [Concomitant]
     Indication: SPINAL CORD COMPRESSION
  9. MORFIN [Concomitant]
     Indication: PAIN
  10. PINEX [Concomitant]
     Indication: PAIN
  11. BENADRYL [Concomitant]
     Indication: PRODUCT USED FOR UNKNOWN INDICATION
     Route: 048
  12. FRAGMIN [Concomitant]
     Indication: PULMONARY EMBOLISM
     Dates: start: 201306

REACTIONS (3)
  - Melaena [Not Recovered/Not Resolved]
  - Rectal haemorrhage [Not Recovered/Not Resolved]
  - Gastrointestinal haemorrhage [Not Recovered/Not Resolved]
